FAERS Safety Report 4949431-1 (Version None)
Quarter: 2006Q1

REPORT INFORMATION
  Report Type: 
  Country: None (occurrence: None)
  Receive Date: 20060315
  Receipt Date: 20060302
  Transmission Date: 20060701
  Serious: Yes (Hospitalization, Other)
  Sender: FDA-Public Use
  Company Number: 2006033341

PATIENT
  Sex: Male
  Weight: 114.3065 kg

DRUGS (6)
  1. VIAGRA [Suspect]
     Indication: ERECTILE DYSFUNCTION
     Dosage: 50 MG (50 MG, 1 IN 1 AS NECESSARY), ORAL
     Route: 048
     Dates: start: 20000101, end: 20010101
  2. ALL OTHER THERAPEUTIC PRODUCTS (ALL OTHER THERAPEUTIC PRODUCTS) [Suspect]
     Indication: DIABETES MELLITUS
     Dosage: UNKNOWN
     Route: 065
     Dates: start: 20050101, end: 20050101
  3. GLUCOPHAGE [Concomitant]
  4. ASPIRIN [Concomitant]
  5. AVANDIA [Concomitant]
  6. TOPROL-XL [Concomitant]

REACTIONS (13)
  - CATARACT [None]
  - DRUG EFFECT DECREASED [None]
  - JOINT RANGE OF MOTION DECREASED [None]
  - LIMB INJURY [None]
  - LOSS OF LIBIDO [None]
  - MUSCULOSKELETAL STIFFNESS [None]
  - MYOCARDIAL INFARCTION [None]
  - NECK INJURY [None]
  - NECK PAIN [None]
  - PHOTOPHOBIA [None]
  - VISUAL ACUITY REDUCED [None]
  - VISUAL DISTURBANCE [None]
  - WEIGHT FLUCTUATION [None]
